FAERS Safety Report 8936649 (Version 2)
Quarter: 2013Q3

REPORT INFORMATION
  Report Type: Spontaneous
  Country: US (occurrence: US)
  Receive Date: 20121130
  Receipt Date: 20130730
  Transmission Date: 20140515
  Serious: Yes (Congenital Anomaly, Other)
  Sender: FDA-Public Use
  Company Number: US-PFIZER INC-2012297632

PATIENT
  Sex: Male
  Weight: 3.7 kg

DRUGS (12)
  1. ZOLOFT [Suspect]
     Dosage: UNK
     Route: 064
     Dates: start: 20100308, end: 20100418
  2. PRENATAL VITAMINS [Concomitant]
     Dosage: UNK
     Route: 064
  3. MS CONTIN [Concomitant]
     Dosage: UNK
     Route: 064
  4. TOPAMAX [Concomitant]
     Dosage: UNK
     Route: 064
  5. CYMBALTA [Concomitant]
     Dosage: UNK
     Route: 064
  6. ALDOMET [Concomitant]
     Dosage: 250 MG, UNK
     Route: 064
     Dates: start: 20100316
  7. HUMULIN R [Concomitant]
     Dosage: UNK
     Route: 064
     Dates: start: 20100322
  8. SERTRALINE [Concomitant]
     Dosage: 50 MG, UNK
     Route: 064
     Dates: start: 20100318
  9. KEFLEX [Concomitant]
     Indication: BACTERIAL VAGINOSIS
     Dosage: 500 MG, UNK
     Route: 064
     Dates: start: 20100408
  10. KEFLEX [Concomitant]
     Indication: URINARY TRACT INFECTION
  11. NYSTATIN/TRIAMCINOLONE [Concomitant]
     Dosage: UNK
     Route: 064
     Dates: start: 20100512
  12. VALTREX [Concomitant]
     Dosage: 500 MG, UNK
     Route: 064
     Dates: start: 20100722

REACTIONS (6)
  - Maternal exposure timing unspecified [Unknown]
  - Heart disease congenital [Unknown]
  - Ventricular septal defect [Unknown]
  - Patent ductus arteriosus [Unknown]
  - Pulmonary artery stenosis congenital [Unknown]
  - Atrial septal defect [Unknown]
